FAERS Safety Report 21691875 (Version 2)
Quarter: 2022Q4

REPORT INFORMATION
  Report Type: Report from Study
  Country: US (occurrence: US)
  Receive Date: 20221207
  Receipt Date: 20221208
  Transmission Date: 20230113
  Serious: Yes (Hospitalization)
  Sender: FDA-Public Use
  Company Number: US-ABBVIE-4226182

PATIENT
  Age: 72 Year
  Sex: Female
  Weight: 118 kg

DRUGS (13)
  1. VENCLEXTA [Suspect]
     Active Substance: VENETOCLAX
     Indication: Chronic lymphocytic leukaemia
     Dosage: 30 MILLIGRAM
     Route: 048
     Dates: start: 20221029, end: 20221105
  2. VENCLEXTA [Suspect]
     Active Substance: VENETOCLAX
     Indication: Chronic lymphocytic leukaemia
     Dosage: 50 MILLIGRAM
     Route: 048
     Dates: start: 20221106, end: 20221113
  3. VENCLEXTA [Suspect]
     Active Substance: VENETOCLAX
     Indication: Chronic lymphocytic leukaemia
     Dosage: 10 MILLIGRAM
     Route: 048
     Dates: start: 20221021, end: 20221028
  4. VENCLEXTA [Suspect]
     Active Substance: VENETOCLAX
     Indication: Chronic lymphocytic leukaemia
     Dosage: 200 MILLIGRAM
     Route: 048
     Dates: start: 20221122, end: 20221130
  5. VENCLEXTA [Suspect]
     Active Substance: VENETOCLAX
     Indication: Chronic lymphocytic leukaemia
     Dosage: 100 MILLIGRAM
     Route: 048
     Dates: start: 20221114, end: 20221121
  6. ALLOPURINOL [Concomitant]
     Active Substance: ALLOPURINOL
     Indication: Tumour lysis syndrome
  7. CARVEDILOL [Concomitant]
     Active Substance: CARVEDILOL
     Indication: Atrial fibrillation
  8. PROCHLORPERAZINE [Concomitant]
     Active Substance: PROCHLORPERAZINE
     Indication: Nausea
  9. TRIMETHOPRIM [Concomitant]
     Active Substance: TRIMETHOPRIM
     Indication: Urinary tract infection
  10. AMLODIPINE [Concomitant]
     Active Substance: AMLODIPINE BESYLATE
     Indication: Hypertension
  11. OXYCODONE [Concomitant]
     Active Substance: OXYCODONE
     Indication: Arthralgia
  12. ELIQUIS [Concomitant]
     Active Substance: APIXABAN
     Indication: Atrial fibrillation
  13. AMITRIPTYLINE [Concomitant]
     Active Substance: AMITRIPTYLINE
     Indication: Hypertonic bladder

REACTIONS (4)
  - Haemoglobin decreased [Recovering/Resolving]
  - White blood cell count decreased [Recovering/Resolving]
  - Asthenia [Recovering/Resolving]
  - Gait disturbance [Recovering/Resolving]

NARRATIVE: CASE EVENT DATE: 20221101
